FAERS Safety Report 7737772-4 (Version None)
Quarter: 2011Q3

REPORT INFORMATION
  Report Type: 
  Country: None (occurrence: None)
  Receive Date: 20110908
  Receipt Date: 20110830
  Transmission Date: 20111222
  Serious: Yes (Hospitalization)
  Sender: FDA-Public Use
  Company Number: JP-B.I. PHARMACEUTICALS,INC./RIDGEFIELD-2011-BP-14593NB

PATIENT
  Sex: Male
  Weight: 57.8 kg

DRUGS (4)
  1. PRADAXA [Suspect]
     Indication: CEREBRAL INFARCTION
     Dosage: 300 MG
     Route: 048
     Dates: start: 20110523
  2. FAMOTIDINE [Concomitant]
     Indication: GASTRITIS
     Dosage: 20 MG
     Route: 048
     Dates: start: 20110506
  3. MAGNESIUM SULFATE [Concomitant]
     Indication: CONSTIPATION
     Dosage: 990 MG
     Route: 048
     Dates: start: 20110602
  4. AMOBAN [Concomitant]
     Route: 065

REACTIONS (1)
  - CEREBRAL INFARCTION [None]
